FAERS Safety Report 19109461 (Version 1)
Quarter: 2021Q2

REPORT INFORMATION
  Report Type: Spontaneous
  Country: DE (occurrence: DE)
  Receive Date: 20210409
  Receipt Date: 20210409
  Transmission Date: 20210717
  Serious: Yes (Other)
  Sender: FDA-Public Use
  Company Number: DE-SUN PHARMACEUTICAL INDUSTRIES LTD-2020RR-269924

PATIENT
  Age: 18 Year
  Sex: Male
  Weight: 51 kg

DRUGS (14)
  1. KALYDECO [Suspect]
     Active Substance: IVACAFTOR
     Indication: CYSTIC FIBROSIS
     Dosage: DAILY DOSE: 150 MG MILLGRAM(S) EVERY DAYS
     Route: 048
     Dates: start: 20200408
  2. SYMKEVI 100/150MG [Suspect]
     Active Substance: IVACAFTOR\TEZACAFTOR
     Indication: CYSTIC FIBROSIS
     Dosage: DAILY DOSE: 1 DF DOSAGE FORM EVERY DAYS
     Route: 048
     Dates: start: 20200408
  3. SALBUTAMOL [Concomitant]
     Active Substance: ALBUTEROL
     Indication: CYSTIC FIBROSIS
     Dosage: DAILY DOSE: 10 GTT DROP(S) EVERY DAYS 2 SEPARATED DOSES
     Route: 055
     Dates: start: 20190301
  4. PANCRELIPASE. [Concomitant]
     Active Substance: PANCRELIPASE
     Indication: PRODUCT USED FOR UNKNOWN INDICATION
     Dosage: UNK
     Route: 065
  5. OMEPRAZOL [Concomitant]
     Active Substance: OMEPRAZOLE
     Indication: CYSTIC FIBROSIS
     Dosage: 20 MILLIGRAM, UNK
     Route: 048
     Dates: start: 20190226
  6. NATRIUMCHLORID 0,9% [Concomitant]
     Indication: CYSTIC FIBROSIS
     Dosage: DAILY DOSE: 5 ML MILLILITRE(S) EVERY DAYS 2 SEPARATED DOSES
     Route: 055
     Dates: start: 20190731
  7. ADEK [Concomitant]
     Indication: CYSTIC FIBROSIS
     Dosage: 1 DOSAGE FORM, DAILY
     Route: 048
     Dates: start: 20181011
  8. PULMOZYME 2500E/2,5ML [Concomitant]
     Indication: CYSTIC FIBROSIS
     Dosage: DAILY DOSE: 2500 IU INTERNATIONAL UNIT(S) EVERY DAYS
     Route: 055
     Dates: start: 20190731
  9. ATROVENT LS 250?G/ML [Concomitant]
     Indication: CYSTIC FIBROSIS
     Dosage: DAILY DOSE: 30 DF DOSAGE FORM EVERY DAYS 2 SEPARATED DOSES
     Route: 055
     Dates: start: 20181011
  10. KREON [Concomitant]
     Active Substance: PANCRELIPASE
     Indication: CYSTIC FIBROSIS
     Dosage: UNK
     Route: 048
     Dates: start: 20190731
  11. FORMOTEROL 12?G [Concomitant]
     Indication: CYSTIC FIBROSIS
     Dosage: DAILY DOSE: 24 ?G MICROGRAM(S) EVERY DAYS 2 SEPARATED DOSES
     Route: 055
     Dates: start: 20190731
  12. ACC 200 [Concomitant]
     Active Substance: ACETYLCYSTEINE
     Indication: CYSTIC FIBROSIS
     Dosage: DAILY DOSE: 200 MG MILLGRAM(S) EVERY DAYS
     Route: 048
     Dates: start: 20190731
  13. TOBRAMYCIN. [Suspect]
     Active Substance: TOBRAMYCIN
     Indication: PSEUDOMONAS TEST POSITIVE
     Dosage: DAILY DOSE: 600 MG MILLGRAM(S) EVERY DAYS 2 SEPARATED DOSES
     Route: 055
     Dates: start: 20200408, end: 20200506
  14. MOVICOL [Concomitant]
     Active Substance: POLYETHYLENE GLYCOL 3350\POTASSIUM CHLORIDE\SODIUM BICARBONATE\SODIUM CHLORIDE
     Indication: CYSTIC FIBROSIS
     Dosage: 1 DOSAGE FORM, DAILY
     Route: 048
     Dates: start: 20190731

REACTIONS (2)
  - Throat tightness [Recovered/Resolved]
  - Increased bronchial secretion [Recovered/Resolved]

NARRATIVE: CASE EVENT DATE: 20200408
